FAERS Safety Report 5083207-2 (Version None)
Quarter: 2006Q3

REPORT INFORMATION
  Report Type: 
  Country: None (occurrence: None)
  Receive Date: 20060816
  Receipt Date: 20060816
  Transmission Date: 20061208
  Serious: Yes (Other)
  Sender: FDA-Public Use
  Company Number: None

PATIENT
  Age: 43 Year
  Sex: Male
  Weight: 95.2554 kg

DRUGS (8)
  1. OXYCODONE ER BY ENDO [Suspect]
     Dosage: 3 X 40MG BID   1 PILL
  2. MECLIZINE [Concomitant]
  3. TOPROL-XL [Concomitant]
  4. FLEXERIL [Concomitant]
  5. MS IR [Concomitant]
  6. ZOCOR [Concomitant]
  7. TESTOSTERONE [Concomitant]
  8. RELPAX [Concomitant]

REACTIONS (2)
  - NAUSEA [None]
  - VOMITING [None]
